FAERS Safety Report 16665507 (Version 1)
Quarter: 2019Q3

REPORT INFORMATION
  Report Type: Spontaneous
  Country: BH (occurrence: BH)
  Receive Date: 20190803
  Receipt Date: 20190803
  Transmission Date: 20191004
  Serious: Yes (Other)
  Sender: FDA-Public Use
  Company Number: PHHY2019BH137807

PATIENT
  Age: 3 Year
  Sex: Male

DRUGS (2)
  1. JADENU [Suspect]
     Active Substance: DEFERASIROX
     Indication: THALASSAEMIA
     Dosage: 360 MG, QD (360 MG, ONCE DAILY)
     Route: 048
  2. JADENU [Suspect]
     Active Substance: DEFERASIROX
     Indication: IRON OVERLOAD
     Dosage: 180 MG, UNK (1 TABLET)
     Route: 048

REACTIONS (7)
  - Vomiting [Not Recovered/Not Resolved]
  - Creatinine urine increased [Unknown]
  - Hypokalaemia [Unknown]
  - Pyrexia [Unknown]
  - Renal tubular acidosis [Not Recovered/Not Resolved]
  - Dehydration [Unknown]
  - Nausea [Not Recovered/Not Resolved]

NARRATIVE: CASE EVENT DATE: 201904
